FAERS Safety Report 5221204-4 (Version None)
Quarter: 2007Q1

REPORT INFORMATION
  Report Type: 
  Country: None (occurrence: None)
  Receive Date: 20070126
  Receipt Date: 20070125
  Transmission Date: 20070707
  Serious: Yes (Life-Threatening, Hospitalization, Disabling, Other)
  Sender: FDA-Public Use
  Company Number: GB-BOEHRINGER INGELHEIM PHARMACEUTICALS, INC.-2007-UK-00302UK

PATIENT
  Age: 62 Year
  Sex: Male
  Weight: 95.45 kg

DRUGS (4)
  1. PRAMIPEXOLE DIHYDROCHLORIDE [Suspect]
     Indication: RESTLESS LEGS SYNDROME
     Dosage: 1DF
     Route: 048
     Dates: start: 20061101, end: 20061228
  2. LATANOPROST [Concomitant]
     Dosage: 1DF ADMINISTERED OPHTHALMICALLY ONCE DAILY
     Dates: start: 20021220
  3. PRIADEL [Concomitant]
     Indication: BIPOLAR DISORDER
     Dates: start: 19991118
  4. TELMISARTAN [Concomitant]
     Dates: end: 20061114

REACTIONS (1)
  - ACUTE MYOCARDIAL INFARCTION [None]
